FAERS Safety Report 21881553 (Version 1)
Quarter: 2023Q1

REPORT INFORMATION
  Report Type: Spontaneous
  Country: FR (occurrence: FR)
  Receive Date: 20230119
  Receipt Date: 20230119
  Transmission Date: 20230417
  Serious: Yes (Other)
  Sender: FDA-Public Use
  Company Number: FR-ROCHE-3264795

PATIENT
  Age: 28 Year
  Sex: Male

DRUGS (1)
  1. VENCLEXTA [Suspect]
     Active Substance: VENETOCLAX
     Indication: Acute myeloid leukaemia
     Dosage: NO
     Route: 048
     Dates: start: 20220603, end: 20220611

REACTIONS (2)
  - Leukaemia recurrent [Not Recovered/Not Resolved]
  - Facial paralysis [Recovered/Resolved]
